FAERS Safety Report 7199839-1 (Version None)
Quarter: 2010Q4

REPORT INFORMATION
  Report Type: 
  Country: None (occurrence: None)
  Receive Date: 20101228
  Receipt Date: 20101224
  Transmission Date: 20110411
  Serious: Yes (Hospitalization)
  Sender: FDA-Public Use
  Company Number: CN-ROCHE-750118

PATIENT
  Age: 28 Year
  Sex: Male

DRUGS (2)
  1. PEGINTERFERON ALFA-2A [Suspect]
     Indication: HEPATITIS B
     Dosage: STRENGTH WAS 180UG.
     Route: 058
     Dates: start: 20101122, end: 20101201
  2. PEGINTERFERON ALFA-2A [Suspect]
     Dosage: STRENGTH WAS 135UG.
     Route: 058
     Dates: start: 20101217

REACTIONS (3)
  - ALPHA 1 FOETOPROTEIN INCREASED [None]
  - JAUNDICE [None]
  - TRANSAMINASES INCREASED [None]
